FAERS Safety Report 4596203-6 (Version None)
Quarter: 2005Q1

REPORT INFORMATION
  Report Type: 
  Country: None (occurrence: None)
  Receive Date: 20050225
  Receipt Date: 20050211
  Transmission Date: 20050727
  Serious: Yes (Hospitalization)
  Sender: FDA-Public Use
  Company Number: CERZ-10786

PATIENT
  Age: 53 Year
  Sex: Female

DRUGS (1)
  1. CEREZYME [Suspect]
     Indication: GAUCHER'S DISEASE
     Dosage: 4200 UNITS Q2WKS IV
     Route: 042
     Dates: start: 20000901

REACTIONS (4)
  - ABDOMINAL HERNIA [None]
  - ABDOMINAL PAIN [None]
  - BREAST CANCER FEMALE [None]
  - INTESTINAL OBSTRUCTION [None]
